FAERS Safety Report 22750625 (Version 2)
Quarter: 2023Q4

REPORT INFORMATION
  Report Type: Spontaneous
  Country: US (occurrence: US)
  Receive Date: 20230726
  Receipt Date: 20231025
  Transmission Date: 20240109
  Serious: No
  Sender: FDA-Public Use
  Company Number: US-BRISTOL-MYERS SQUIBB COMPANY-2023-104538

PATIENT
  Age: 17 Year
  Sex: Male
  Weight: 86.3 kg

DRUGS (1)
  1. OPDIVO [Suspect]
     Active Substance: NIVOLUMAB
     Indication: Neoplasm malignant
     Dosage: ROUTE OF ADMINISTRATION : IV INFUSION.?STRENGTH AND PRESENTATION OF THE AE : 1 VIAL OF 250MG.
     Route: 042

REACTIONS (1)
  - Prescribed overdose [Unknown]
